FAERS Safety Report 4902052-9 (Version None)
Quarter: 2006Q1

REPORT INFORMATION
  Report Type: 
  Country: None (occurrence: None)
  Receive Date: 20060206
  Receipt Date: 20030407
  Transmission Date: 20060701
  Serious: Yes (Other)
  Sender: FDA-Public Use
  Company Number: US-GLAXOSMITHKLINE-A0404758A

PATIENT
  Age: 53 Year
  Sex: Female
  Weight: 85 kg

DRUGS (6)
  1. PAXIL [Suspect]
     Dosage: 20MG PER DAY
     Route: 048
  2. PREMARIN [Concomitant]
  3. XANAX [Concomitant]
  4. FLEXERIL [Concomitant]
  5. VENTOLIN [Concomitant]
     Route: 055
  6. ALLEGRA [Concomitant]
     Dosage: 60MG AS REQUIRED

REACTIONS (25)
  - ABNORMAL DREAMS [None]
  - AGITATION [None]
  - ANXIETY [None]
  - ASTHENIA [None]
  - CONFUSIONAL STATE [None]
  - DEPENDENCE [None]
  - DIZZINESS [None]
  - DRUG DEPENDENCE [None]
  - DRUG WITHDRAWAL SYNDROME [None]
  - DYSARTHRIA [None]
  - FATIGUE [None]
  - GAIT DISTURBANCE [None]
  - GASTROINTESTINAL DISORDER [None]
  - HEADACHE [None]
  - HYPERHIDROSIS [None]
  - INSOMNIA [None]
  - IRRITABILITY [None]
  - MUSCLE SPASMS [None]
  - NAUSEA [None]
  - PALPITATIONS [None]
  - PARAESTHESIA [None]
  - SENSATION OF HEAVINESS [None]
  - SENSORY DISTURBANCE [None]
  - SLEEP DISORDER [None]
  - TREMOR [None]
